FAERS Safety Report 8338922-1 (Version None)
Quarter: 2012Q2

REPORT INFORMATION
  Report Type: 
  Country: None (occurrence: None)
  Receive Date: 20120506
  Receipt Date: 20100803
  Transmission Date: 20120825
  Serious: Yes (Other)
  Sender: FDA-Public Use
  Company Number: PHHY2010NL52458

PATIENT
  Age: 69 Year
  Sex: Female

DRUGS (8)
  1. METFORMIN HCL [Suspect]
  2. FOSINOPRIL SODIUM [Suspect]
  3. MICONAZOLE [Interacting]
     Indication: FUNGAL INFECTION
     Dosage: 20 MG/G
  4. ACENOCOUMAROL [Interacting]
  5. GLIMEPIRIDE [Suspect]
  6. CHLORTHALIDONE [Suspect]
  7. METOPROLOL TARTRATE [Suspect]
  8. BISACODYL [Suspect]

REACTIONS (2)
  - INTERNATIONAL NORMALISED RATIO INCREASED [None]
  - DRUG INTERACTION [None]
